FAERS Safety Report 20412724 (Version 1)
Quarter: 2022Q1

REPORT INFORMATION
  Report Type: Other
  Country: GB (occurrence: None)
  Receive Date: 20220201
  Receipt Date: 20220201
  Transmission Date: 20220423
  Serious: Yes (Other)
  Sender: FDA-Public Use
  Company Number: GB-Invatech-000214

PATIENT
  Age: 65 Year
  Sex: Male

DRUGS (1)
  1. AMANTADINE [Suspect]
     Active Substance: AMANTADINE
     Indication: Product used for unknown indication
     Dosage: 100 MG TWICE DAILY

REACTIONS (2)
  - Generalised tonic-clonic seizure [Recovered/Resolved]
  - Condition aggravated [Recovered/Resolved]
